FAERS Safety Report 6383517-2 (Version None)
Quarter: 2009Q4

REPORT INFORMATION
  Report Type: 
  Country: None (occurrence: None)
  Receive Date: 20091001
  Receipt Date: 20090923
  Transmission Date: 20100525
  Serious: Yes (Death)
  Sender: FDA-Public Use
  Company Number: US-ROCHE-656576

PATIENT
  Sex: Male
  Weight: 89.8 kg

DRUGS (1)
  1. CAPECITABINE [Suspect]
     Indication: COLORECTAL CANCER
     Dosage: DOSE: 500 MG TABLET, 1 BID
     Route: 048
     Dates: start: 20090126, end: 20090701

REACTIONS (1)
  - DEATH [None]
